FAERS Safety Report 17166365 (Version 5)
Quarter: 2020Q1

REPORT INFORMATION
  Report Type: Report from Study
  Country: US (occurrence: US)
  Receive Date: 20191217
  Receipt Date: 20200330
  Transmission Date: 20200409
  Serious: Yes (Death, Hospitalization)
  Sender: FDA-Public Use
  Company Number: US-ACTELION-A-NJ2019-199450

PATIENT
  Age: 70 Year
  Sex: Female
  Weight: 68.93 kg

DRUGS (3)
  1. ELIQUIS [Concomitant]
     Active Substance: APIXABAN
  2. UPTRAVI [Suspect]
     Active Substance: SELEXIPAG
     Indication: PULMONARY ARTERIAL HYPERTENSION
     Dosage: 800 MCG, BID
     Route: 048
     Dates: end: 202002
  3. UPTRAVI [Suspect]
     Active Substance: SELEXIPAG
     Dosage: 800 MCG IN AM, 600MCG IN PM
     Route: 048
     Dates: start: 202002

REACTIONS (10)
  - Skin infection [Unknown]
  - Pulmonary hypertension [Fatal]
  - Swelling [Unknown]
  - Dyspnoea [Recovering/Resolving]
  - Product dose omission [Recovered/Resolved]
  - Disease progression [Fatal]
  - Fluid retention [Unknown]
  - Hospitalisation [Unknown]
  - Malaise [Unknown]
  - General physical health deterioration [Unknown]

NARRATIVE: CASE EVENT DATE: 20200206
